FAERS Safety Report 17219847 (Version 2)
Quarter: 2020Q1

REPORT INFORMATION
  Report Type: Spontaneous
  Country: US (occurrence: US)
  Receive Date: 20191231
  Receipt Date: 20200103
  Transmission Date: 20200409
  Serious: No
  Sender: FDA-Public Use
  Company Number: US-009507513-1912USA003698

PATIENT
  Age: 3 Year
  Sex: Male

DRUGS (3)
  1. STERILE DILUENT (WATER) [Suspect]
     Active Substance: WATER
     Dosage: 0.5 MILLILITER
     Dates: start: 20190517
  2. M-M-R II [Suspect]
     Active Substance: MEASLES VIRUS STRAIN ENDERS^ ATTENUATED EDMONSTON LIVE ANTIGEN\MUMPS VIRUS STRAIN B LEVEL JERYL LYNN LIVE ANTIGEN\RUBELLA VIRUS STRAIN WISTAR RA 27/3 LIVE ANTIGEN
     Indication: PROPHYLAXIS
  3. STERILE DILUENT (WATER) [Suspect]
     Active Substance: WATER
     Dosage: UNK
     Dates: start: 20190617

REACTIONS (3)
  - Antibody test negative [Unknown]
  - Product preparation error [Unknown]
  - Mumps antibody test negative [Unknown]

NARRATIVE: CASE EVENT DATE: 20190517
